FAERS Safety Report 7888371-5 (Version None)
Quarter: 2011Q4

REPORT INFORMATION
  Report Type: 
  Country: None (occurrence: None)
  Receive Date: 20111103
  Receipt Date: 20111031
  Transmission Date: 20120403
  Serious: Yes (Hospitalization, Other)
  Sender: FDA-Public Use
  Company Number: GB-PFIZER INC-2011266618

PATIENT
  Age: 42 Year
  Sex: Female

DRUGS (2)
  1. HALAVEN [Suspect]
     Indication: BREAST CANCER METASTATIC
     Dosage: UNK
     Dates: start: 20110930
  2. PHENYTOIN [Suspect]
     Dosage: UNK
     Dates: start: 20110801

REACTIONS (4)
  - RASH [None]
  - HERPES ZOSTER DISSEMINATED [None]
  - BODY TEMPERATURE INCREASED [None]
  - TOXIC EPIDERMAL NECROLYSIS [None]
